FAERS Safety Report 4901977-8 (Version None)
Quarter: 2006Q1

REPORT INFORMATION
  Report Type: 
  Country: None (occurrence: None)
  Receive Date: 20060206
  Receipt Date: 20041123
  Transmission Date: 20060701
  Serious: Yes (Hospitalization, Disabling)
  Sender: FDA-Public Use
  Company Number: US-ROCHE-387332

PATIENT
  Age: 23 Year
  Sex: Male
  Weight: 66.2 kg

DRUGS (2)
  1. ACCUTANE [Suspect]
     Indication: ACNE
     Route: 048
     Dates: start: 19960614, end: 19960702
  2. ADVIL [Concomitant]
     Indication: HEADACHE
     Route: 048

REACTIONS (30)
  - ANAEMIA [None]
  - ANAL FISSURE [None]
  - APHTHOUS STOMATITIS [None]
  - BLEPHARITIS [None]
  - BLOOD ALBUMIN DECREASED [None]
  - BLOOD POTASSIUM DECREASED [None]
  - COLITIS [None]
  - COLITIS ULCERATIVE [None]
  - CROHN'S DISEASE [None]
  - DEPRESSION [None]
  - ENTERITIS [None]
  - ENTEROCOLITIS INFECTIOUS [None]
  - GASTROINTESTINAL DISORDER [None]
  - HAEMORRHOIDS [None]
  - HERPES SIMPLEX [None]
  - INFLAMMATORY BOWEL DISEASE [None]
  - INTESTINAL HAEMORRHAGE [None]
  - MALNUTRITION [None]
  - MULTI-ORGAN DISORDER [None]
  - NAIL TINEA [None]
  - ONYCHOMYCOSIS [None]
  - PHARYNGOLARYNGEAL PAIN [None]
  - PLATELET COUNT INCREASED [None]
  - RASH [None]
  - RECTAL ABSCESS [None]
  - RECTAL HAEMORRHAGE [None]
  - SINUS CONGESTION [None]
  - SINUSITIS [None]
  - SUICIDAL IDEATION [None]
  - WHITE BLOOD CELL COUNT INCREASED [None]
